FAERS Safety Report 11822564 (Version 1)
Quarter: 2015Q4

REPORT INFORMATION
  Report Type: Report from Study
  Country: US (occurrence: US)
  Receive Date: 20151210
  Receipt Date: 20151210
  Transmission Date: 20160305
  Serious: Yes (Hospitalization, Other)
  Sender: FDA-Public Use
  Company Number: US-AMGEN-USASL2015130392

PATIENT
  Age: 80 Year
  Sex: Female

DRUGS (1)
  1. ENBREL [Suspect]
     Active Substance: ETANERCEPT
     Indication: RHEUMATOID ARTHRITIS
     Dosage: 50 MG, QWK
     Route: 065
     Dates: start: 20030301

REACTIONS (11)
  - Myocardial infarction [Unknown]
  - Loss of consciousness [Unknown]
  - Tongue biting [Unknown]
  - Vomiting [Unknown]
  - Amnesia [Unknown]
  - Balance disorder [Unknown]
  - Osteoarthritis [Unknown]
  - Vertigo [Unknown]
  - Nausea [Unknown]
  - Urinary incontinence [Unknown]
  - Cerebrovascular accident [Unknown]

NARRATIVE: CASE EVENT DATE: 2015
